FAERS Safety Report 8187410-4 (Version None)
Quarter: 2012Q1

REPORT INFORMATION
  Report Type: 
  Country: None (occurrence: None)
  Receive Date: 20120306
  Receipt Date: 20120229
  Transmission Date: 20120608
  Serious: Yes (Hospitalization, Other)
  Sender: FDA-Public Use
  Company Number: US-PFIZER INC-2011220311

PATIENT
  Sex: Female
  Weight: 108.39 kg

DRUGS (4)
  1. LYRICA [Suspect]
     Indication: FIBROMYALGIA
     Dosage: 300 MG, 2X/DAY
     Route: 048
  2. XANAX [Concomitant]
     Dosage: UNK
  3. LIPITOR [Suspect]
     Dosage: UNK
  4. CELEXA [Concomitant]
     Dosage: UNK

REACTIONS (10)
  - DRUG INTOLERANCE [None]
  - DIZZINESS [None]
  - ACTIVITIES OF DAILY LIVING IMPAIRED [None]
  - INSOMNIA [None]
  - HYPOKINESIA [None]
  - DYSKINESIA [None]
  - HALLUCINATIONS, MIXED [None]
  - FEELING ABNORMAL [None]
  - DEPRESSION [None]
  - EATING DISORDER [None]
